FAERS Safety Report 13571897 (Version 10)
Quarter: 2018Q2

REPORT INFORMATION
  Report Type: Spontaneous
  Country: JP (occurrence: JP)
  Receive Date: 20170523
  Receipt Date: 20180528
  Transmission Date: 20180711
  Serious: Yes (Hospitalization, Other)
  Sender: FDA-Public Use
  Company Number: JP-009507513-1703JPN003060J

PATIENT
  Age: 70 Year
  Sex: Male
  Weight: 70 kg

DRUGS (5)
  1. DAIKENCHUTO [Concomitant]
     Active Substance: HERBALS
     Indication: PROPHYLAXIS
     Dosage: 5.0 G, THREE TIMES A DAY
     Route: 048
  2. KEYTRUDA [Suspect]
     Active Substance: PEMBROLIZUMAB
     Dosage: 200 MG, EVERY THREE WEEKS
     Route: 041
     Dates: start: 20170703
  3. MAGNESIUM OXIDE. [Concomitant]
     Active Substance: MAGNESIUM OXIDE
     Indication: PROPHYLAXIS
     Dosage: 0.6 G, THREE TIMES A DAY
     Route: 048
  4. KEYTRUDA [Suspect]
     Active Substance: PEMBROLIZUMAB
     Indication: LUNG ADENOCARCINOMA
     Dosage: 200 MG, EVERY THREE WEEKS
     Route: 041
     Dates: start: 20170322, end: 20170411
  5. NEXIUM [Concomitant]
     Active Substance: ESOMEPRAZOLE MAGNESIUM
     Indication: PROPHYLAXIS
     Dosage: 20 MG, DAILY
     Route: 048

REACTIONS (4)
  - Hyperthyroidism [Recovered/Resolved]
  - Hepatic function abnormal [Recovering/Resolving]
  - C-reactive protein increased [Recovering/Resolving]
  - Rash [Recovered/Resolved]

NARRATIVE: CASE EVENT DATE: 20170324
